FAERS Safety Report 4446241-9 (Version None)
Quarter: 2004Q3

REPORT INFORMATION
  Report Type: 
  Country: None (occurrence: None)
  Receive Date: 20040903
  Receipt Date: 20040825
  Transmission Date: 20050211
  Serious: Yes (Death)
  Sender: FDA-Public Use
  Company Number: HQWYE272213AUG04

PATIENT
  Age: 78 Year
  Sex: Male

DRUGS (4)
  1. CORDARONE [Suspect]
     Indication: ARRHYTHMIA
     Dosage: 200 MG 5X PER 1 WK
     Route: 048
     Dates: start: 20010101, end: 20040711
  2. SPASFON (PHLOROGLUCINOL/THRIMETHYLPHLORGLUCINOL) [Concomitant]
  3. UNSPECIFIED ANALGESIC [Concomitant]
  4. HYPERIUM (RILMENIDINE) [Concomitant]

REACTIONS (6)
  - ABDOMINAL PAIN [None]
  - DIARRHOEA [None]
  - FATIGUE [None]
  - FEELING COLD [None]
  - MYOCARDIAL INFARCTION [None]
  - VOMITING [None]
